FAERS Safety Report 7779870-5 (Version None)
Quarter: 2011Q3

REPORT INFORMATION
  Report Type: 
  Country: None (occurrence: None)
  Receive Date: 20110927
  Receipt Date: 20110913
  Transmission Date: 20111222
  Serious: No
  Sender: FDA-Public Use
  Company Number: US-B.I. PHARMACEUTICALS,INC./RIDGEFIELD-2011-BP-19688BP

PATIENT
  Age: 62 Year
  Sex: Female

DRUGS (5)
  1. POTASSIUM [Concomitant]
  2. AMARYL [Concomitant]
  3. LASIX [Concomitant]
  4. PRADAXA [Suspect]
     Indication: ATRIAL FIBRILLATION
     Dosage: 300 MG
     Route: 048
     Dates: end: 20110223
  5. PREVACID [Concomitant]

REACTIONS (3)
  - OEDEMA PERIPHERAL [None]
  - ABDOMINAL PAIN UPPER [None]
  - ARTHRALGIA [None]
